FAERS Safety Report 12933684 (Version 4)
Quarter: 2017Q1

REPORT INFORMATION
  Report Type: Spontaneous
  Country: CH (occurrence: CH)
  Receive Date: 20161111
  Receipt Date: 20170118
  Transmission Date: 20170428
  Serious: Yes (Death, Life-Threatening, Other)
  Sender: FDA-Public Use
  Company Number: PHHY2016CH154427

PATIENT
  Age: 57 Year
  Sex: Female

DRUGS (6)
  1. IBUPROFEN. [Concomitant]
     Active Substance: IBUPROFEN
     Indication: PRODUCT USED FOR UNKNOWN INDICATION
     Dosage: UNK
     Route: 065
  2. GILENYA [Suspect]
     Active Substance: FINGOLIMOD HYDROCHLORIDE
     Indication: RELAPSING-REMITTING MULTIPLE SCLEROSIS
     Dosage: 0.5 MG, QD
     Route: 048
     Dates: start: 20120119
  3. NATALIZUMAB [Concomitant]
     Active Substance: NATALIZUMAB
     Indication: RELAPSING-REMITTING MULTIPLE SCLEROSIS
     Dosage: UNK
     Route: 041
     Dates: start: 20160921
  4. NATALIZUMAB [Concomitant]
     Active Substance: NATALIZUMAB
     Dosage: UNK
     Route: 041
     Dates: start: 20161019
  5. NATALIZUMAB [Concomitant]
     Active Substance: NATALIZUMAB
     Indication: RELAPSING-REMITTING MULTIPLE SCLEROSIS
     Dosage: UNK
     Route: 041
     Dates: start: 20160823
  6. TYSABRI [Suspect]
     Active Substance: NATALIZUMAB
     Indication: RELAPSING-REMITTING MULTIPLE SCLEROSIS
     Dosage: 300 MG, QMO
     Route: 042

REACTIONS (25)
  - Cerebellar syndrome [Unknown]
  - Pneumonia aspiration [Unknown]
  - Progressive multifocal leukoencephalopathy [Not Recovered/Not Resolved]
  - Disturbance in attention [Unknown]
  - Angioedema [Unknown]
  - Depression [Unknown]
  - Dysphagia [Unknown]
  - Pupillary disorder [Unknown]
  - Eye movement disorder [Unknown]
  - Dermatitis [Unknown]
  - Persistent depressive disorder [Unknown]
  - Acute respiratory failure [Unknown]
  - Mental disorder [Unknown]
  - Decerebrate posture [Unknown]
  - Immune reconstitution inflammatory syndrome [Unknown]
  - Dizziness [Unknown]
  - Epilepsy [Unknown]
  - Multiple sclerosis relapse [Recovering/Resolving]
  - Extrapyramidal disorder [Unknown]
  - Escherichia urinary tract infection [Unknown]
  - Somatic symptom disorder [Unknown]
  - Aspiration bronchial [Unknown]
  - Death [Fatal]
  - Personality change [Unknown]
  - Lethargy [Unknown]

NARRATIVE: CASE EVENT DATE: 20160722
